FAERS Safety Report 10139291 (Version 2)
Quarter: 2018Q4

REPORT INFORMATION
  Report Type: Spontaneous
  Country: FR (occurrence: FR)
  Receive Date: 20140429
  Receipt Date: 20181210
  Transmission Date: 20190204
  Serious: Yes (Hospitalization)
  Sender: FDA-Public Use
  Company Number: PHHY2014FR051074

PATIENT
  Age: 47 Year
  Sex: Male

DRUGS (9)
  1. IBUPROFENE [Concomitant]
     Active Substance: IBUPROFEN
     Indication: BACK PAIN
     Dosage: UNK UKN, UNK
  2. SUBUTEX [Concomitant]
     Active Substance: BUPRENORPHINE HYDROCHLORIDE
     Indication: PRODUCT USED FOR UNKNOWN INDICATION
     Dosage: 8 MG, BID
     Route: 065
  3. ACUPAN [Concomitant]
     Active Substance: NEFOPAM HYDROCHLORIDE
     Indication: BACK PAIN
     Dosage: 4 DF, QD
     Dates: start: 20140129
  4. VOLTARENE EMULGEL [Suspect]
     Active Substance: DICLOFENAC DIETHYLAMINE
     Indication: BACK PAIN
     Dosage: 1 %, UNK
     Route: 003
     Dates: start: 20140124
  5. PACLITAXEL KABI [Suspect]
     Active Substance: PACLITAXEL
     Indication: ANGIOSARCOMA
     Dosage: UNK UKN, FIRST COURSE
     Route: 042
     Dates: start: 20140115, end: 20140129
  6. PACLITAXEL KABI [Suspect]
     Active Substance: PACLITAXEL
     Dosage: UNK UKN, UNK
     Route: 042
     Dates: start: 20140312
  7. VOLTARENE (DICLOFENAC SODIUM) [Suspect]
     Active Substance: DICLOFENAC SODIUM
     Indication: BACK PAIN
     Dosage: UNK UKN, UNK
     Route: 048
     Dates: start: 20140124
  8. INEXIUM//ESOMEPRAZOLE MAGNESIUM [Concomitant]
     Active Substance: ESOMEPRAZOLE MAGNESIUM
     Indication: BACK PAIN
     Dosage: 20 MG, QD
     Dates: start: 20140129
  9. SOLUPRED [PREDNISOLONE METASULFOBENZOATE SODIUM] [Concomitant]
     Active Substance: PREDNISOLONE SODIUM METAZOATE
     Indication: BACK PAIN
     Dosage: 60 MG, QD
     Dates: start: 20140129

REACTIONS (2)
  - Staphylococcal infection [Not Recovered/Not Resolved]
  - Endocarditis [Not Recovered/Not Resolved]

NARRATIVE: CASE EVENT DATE: 20140201
